FAERS Safety Report 23268528 (Version 3)
Quarter: 2023Q4

REPORT INFORMATION
  Report Type: Spontaneous
  Country: US (occurrence: US)
  Receive Date: 20231206
  Receipt Date: 20231222
  Transmission Date: 20240110
  Serious: Yes (Other)
  Sender: FDA-Public Use
  Company Number: US-PPDUS-2023ST004492

PATIENT
  Age: 93 Year
  Sex: Female

DRUGS (4)
  1. ORSERDU [Suspect]
     Active Substance: ELACESTRANT
     Indication: Product used for unknown indication
     Dosage: 345 MG, ONCE A DAY
     Route: 048
     Dates: start: 20231025, end: 20231127
  2. MIRALAX [Concomitant]
     Active Substance: POLYETHYLENE GLYCOL 3350
     Indication: Constipation
  3. TYLENOL [Concomitant]
     Active Substance: ACETAMINOPHEN
     Indication: Fatigue
  4. ZOFRAN [Concomitant]
     Active Substance: ONDANSETRON HYDROCHLORIDE
     Indication: Vomiting

REACTIONS (19)
  - Dementia [Unknown]
  - Drug tolerance decreased [Unknown]
  - Illness [Unknown]
  - Decreased interest [Not Recovered/Not Resolved]
  - Emotional distress [Unknown]
  - Therapy cessation [Unknown]
  - Malaise [Recovering/Resolving]
  - Lethargy [Not Recovered/Not Resolved]
  - Dysgeusia [Not Recovered/Not Resolved]
  - Adverse drug reaction [Not Recovered/Not Resolved]
  - Candida infection [Recovering/Resolving]
  - Weight decreased [Not Recovered/Not Resolved]
  - Dysphagia [Not Recovered/Not Resolved]
  - Drug intolerance [Unknown]
  - Decreased appetite [Not Recovered/Not Resolved]
  - Fatigue [Recovering/Resolving]
  - Vomiting [Unknown]
  - Nausea [Recovering/Resolving]
  - Asthenia [Not Recovered/Not Resolved]
